FAERS Safety Report 6282290-6 (Version None)
Quarter: 2009Q3

REPORT INFORMATION
  Report Type: 
  Country: None (occurrence: None)
  Receive Date: 20090724
  Receipt Date: 20090713
  Transmission Date: 20100115
  Serious: Yes (Other)
  Sender: FDA-Public Use
  Company Number: BE-BAYER-200924688GPV

PATIENT
  Age: 42 Year
  Sex: Female
  Weight: 60 kg

DRUGS (2)
  1. YASMIN [Suspect]
     Indication: CONTRACEPTION
     Dates: end: 20090601
  2. NOBITEN [Concomitant]
     Indication: HYPERTENSION

REACTIONS (5)
  - CHEST PAIN [None]
  - LUNG CYST [None]
  - LUNG INFECTION [None]
  - PULMONARY EMBOLISM [None]
  - RESPIRATORY DISORDER [None]
